FAERS Safety Report 7462343-7 (Version None)
Quarter: 2011Q2

REPORT INFORMATION
  Report Type: 
  Country: None (occurrence: None)
  Receive Date: 20110506
  Receipt Date: 20110504
  Transmission Date: 20111010
  Serious: Yes (Hospitalization)
  Sender: FDA-Public Use
  Company Number: CN-PFIZER INC-2011095394

PATIENT
  Age: 48 Year
  Sex: Male

DRUGS (1)
  1. SUTENT [Suspect]
     Indication: RENAL CELL CARCINOMA
     Route: 048

REACTIONS (2)
  - PLATELET COUNT DECREASED [None]
  - LIVER SARCOIDOSIS [None]
